FAERS Safety Report 19616075 (Version 3)
Quarter: 2021Q3

REPORT INFORMATION
  Report Type: Report from Study
  Country: US (occurrence: US)
  Receive Date: 20210727
  Receipt Date: 20210929
  Transmission Date: 20211014
  Serious: Yes (Hospitalization)
  Sender: FDA-Public Use
  Company Number: US-TAKEDA-US202015302

PATIENT
  Sex: Female
  Weight: 61 kg

DRUGS (12)
  1. ICATIBANT [Suspect]
     Active Substance: ICATIBANT ACETATE
     Indication: IMMUNE SYSTEM DISORDER
     Dosage: 30 MILLIGRAM, PRN
     Route: 058
     Dates: start: 20120419
  2. TAKHZYRO [Suspect]
     Active Substance: LANADELUMAB-FLYO
     Indication: IMMUNE SYSTEM DISORDER
     Dosage: 300 MILLIGRAM, Q2WEEKS
     Route: 058
     Dates: start: 20191206
  3. TAKHZYRO [Suspect]
     Active Substance: LANADELUMAB-FLYO
     Indication: GASTROOESOPHAGEAL REFLUX DISEASE
     Dosage: 300 MILLIGRAM, Q2WEEKS
     Route: 058
     Dates: start: 20191209
  4. EPINEPHRINE. [Concomitant]
     Active Substance: EPINEPHRINE
  5. PRAVASTATIN. [Concomitant]
     Active Substance: PRAVASTATIN
  6. MICARDIS [Concomitant]
     Active Substance: TELMISARTAN
  7. HAEGARDA [Concomitant]
     Active Substance: HUMAN C1-ESTERASE INHIBITOR
  8. VERAPAMIL [Concomitant]
     Active Substance: VERAPAMIL HYDROCHLORIDE
  9. METOPROLOL TARTRATE HEXAL [Concomitant]
     Active Substance: METOPROLOL TARTRATE
  10. ICATIBANT [Suspect]
     Active Substance: ICATIBANT ACETATE
     Indication: IMMUNE SYSTEM DISORDER
     Dosage: 30 MILLIGRAM, PRN
     Route: 058
     Dates: start: 20120419
  11. TAKHZYRO [Suspect]
     Active Substance: LANADELUMAB-FLYO
     Indication: ILL-DEFINED DISORDER
  12. TAKHZYRO [Suspect]
     Active Substance: LANADELUMAB-FLYO
     Indication: OSTEOPOROSIS

REACTIONS (3)
  - Illness [Unknown]
  - Biopsy lung [Unknown]
  - Hereditary angioedema [Unknown]
